FAERS Safety Report 4617191-X (Version None)
Quarter: 2005Q1

REPORT INFORMATION
  Report Type: 
  Country: None (occurrence: None)
  Receive Date: 20050323
  Receipt Date: 20050103
  Transmission Date: 20050727
  Serious: Yes (Hospitalization)
  Sender: FDA-Public Use
  Company Number: DK-NOVOPROD-241472

PATIENT
  Age: 73 Year
  Sex: Female
  Weight: 170 kg

DRUGS (6)
  1. NOVOMIX 30 FLEXPEN [Suspect]
     Indication: DIABETES MELLITUS
     Dosage: 42 IU, QD / 26 + 16
     Dates: start: 20040101
  2. NOVOMIX 30 FLEXPEN [Suspect]
  3. CENTYL [Concomitant]
  4. NORVASC [Concomitant]
  5. ZOCOR [Concomitant]
  6. SOTALOL HCL [Concomitant]

REACTIONS (2)
  - ANKLE FRACTURE [None]
  - HYPOGLYCAEMIA [None]
